FAERS Safety Report 10257095 (Version 1)
Quarter: 2014Q2

REPORT INFORMATION
  Report Type: Spontaneous
  Country: US (occurrence: US)
  Receive Date: 20140625
  Receipt Date: 20140625
  Transmission Date: 20141212
  Serious: No
  Sender: FDA-Public Use
  Company Number: 2014SP001249

PATIENT
  Sex: Female

DRUGS (13)
  1. DOXYCYCLINE [Suspect]
     Indication: PRODUCT USED FOR UNKNOWN INDICATION
  2. DOXYCYCLINE [Suspect]
     Indication: PRODUCT USED FOR UNKNOWN INDICATION
  3. CELECOXIB [Suspect]
     Indication: PRODUCT USED FOR UNKNOWN INDICATION
  4. CEFADROXIL [Suspect]
     Indication: PRODUCT USED FOR UNKNOWN INDICATION
  5. LOSARTAN [Suspect]
     Indication: PRODUCT USED FOR UNKNOWN INDICATION
  6. LISINOPRIL [Suspect]
     Indication: PRODUCT USED FOR UNKNOWN INDICATION
  7. NITROFURANTOIN [Suspect]
     Indication: PRODUCT USED FOR UNKNOWN INDICATION
  8. MONTELUKAST SODIUM [Concomitant]
  9. SALBUTAMOL SULFATE [Concomitant]
  10. SERETIDE [Concomitant]
  11. FLUTICASONE FUROATE [Concomitant]
  12. ESTROGENS CONJUGATED [Concomitant]
  13. NEBIVOLOL HYDROCHLORIDE [Concomitant]

REACTIONS (1)
  - Drug hypersensitivity [Unknown]
